FAERS Safety Report 4894759-7 (Version None)
Quarter: 2006Q1

REPORT INFORMATION
  Report Type: 
  Country: None (occurrence: None)
  Receive Date: 20060126
  Receipt Date: 20060126
  Transmission Date: 20060701
  Serious: Yes (Disabling)
  Sender: FDA-Public Use
  Company Number: None

PATIENT
  Age: 82 Year
  Sex: Male

DRUGS (7)
  1. WARFARIN    1.25MG [Suspect]
     Indication: ANTICOAGULANT THERAPY
     Dosage: 1.25MG    MON, FRI   PO
     Route: 048
     Dates: start: 20050613, end: 20050831
  2. WARFARIN    2.5MG [Suspect]
     Indication: ANTICOAGULANT THERAPY
     Dosage: 2.5MG   4X/WEEK   PO
     Route: 048
  3. SIMVASTATIN [Concomitant]
  4. RANITIDINE HCL [Concomitant]
  5. OMEPRAZOLE [Concomitant]
  6. GEMFIBROZIL [Concomitant]
  7. AMIODARONE HCL [Concomitant]

REACTIONS (3)
  - ARTHRALGIA [None]
  - HAEMATOMA [None]
  - INTERNATIONAL NORMALISED RATIO INCREASED [None]
